FAERS Safety Report 16610103 (Version 1)
Quarter: 2019Q3

REPORT INFORMATION
  Report Type: Spontaneous
  Country: ES (occurrence: ES)
  Receive Date: 20190722
  Receipt Date: 20190722
  Transmission Date: 20191004
  Serious: Yes (Hospitalization)
  Sender: FDA-Public Use
  Company Number: ES-TEVA-2019-ES-1080334

PATIENT
  Age: 8 Month
  Sex: Male
  Weight: 11 kg

DRUGS (5)
  1. OMEPRAZOL (2141A) [Interacting]
     Active Substance: OMEPRAZOLE
     Indication: GASTRITIS PROPHYLAXIS
     Route: 048
     Dates: start: 20190318, end: 20190326
  2. AMOXICILINA (108A) [Suspect]
     Active Substance: AMOXICILLIN
     Indication: BRONCHITIS
     Route: 048
     Dates: start: 20190318, end: 20190326
  3. SALBUTAMOL (2297A) [Interacting]
     Active Substance: ALBUTEROL
     Indication: BRONCHITIS
     Route: 055
     Dates: start: 20190318, end: 20190326
  4. VIGABATRINA (2524A) [Concomitant]
     Indication: INFANTILE SPASMS
     Route: 048
     Dates: start: 20190308
  5. TETRACOSACTIDA (3106A) [Interacting]
     Active Substance: COSYNTROPIN
     Indication: INFANTILE SPASMS
     Route: 030
     Dates: start: 20190308, end: 20190407

REACTIONS (2)
  - Hypokalaemia [Recovered/Resolved]
  - Drug interaction [Unknown]

NARRATIVE: CASE EVENT DATE: 20190326
